FAERS Safety Report 6198354-1 (Version None)
Quarter: 2009Q2

REPORT INFORMATION
  Report Type: 
  Country: None (occurrence: None)
  Receive Date: 20090521
  Receipt Date: 20090513
  Transmission Date: 20091009
  Serious: Yes (Other)
  Sender: FDA-Public Use
  Company Number: GB-AVENTIS-200914256GDDC

PATIENT
  Age: 36 Year
  Sex: Female
  Weight: 94 kg

DRUGS (5)
  1. LANTUS [Suspect]
     Dosage: DOSE: VARIABLE DOSE NOS
     Route: 058
     Dates: start: 20081201
  2. ATENOLOL [Concomitant]
  3. SIMVADOR [Concomitant]
  4. METFORMIN HCL [Concomitant]
     Dosage: DOSE QUANTITY: 2
  5. GLICLAZIDE [Concomitant]
     Dosage: DOSE QUANTITY: 2

REACTIONS (2)
  - HYPOGLYCAEMIA [None]
  - WEIGHT INCREASED [None]
